FAERS Safety Report 6574264-2 (Version None)
Quarter: 2010Q1

REPORT INFORMATION
  Report Type: 
  Country: None (occurrence: None)
  Receive Date: 20100125
  Receipt Date: 20100115
  Transmission Date: 20100710
  Serious: Yes (Other)
  Sender: FDA-Public Use
  Company Number: JHP201000033

PATIENT
  Sex: Female

DRUGS (1)
  1. APLISOL DIAGNOSTIC ANTIGEN (TUBERCULIN PPD) INJECTIN, 0.1ML [Suspect]
     Indication: TUBERCULOSIS TEST
     Dosage: 0.1 MG, SINGLE, INTRADERMAL
     Route: 023
     Dates: start: 20091201, end: 20091201

REACTIONS (4)
  - BLISTER [None]
  - INJECTION SITE PAIN [None]
  - LOCALISED INFECTION [None]
  - SCAR [None]
